FAERS Safety Report 14709244 (Version 9)
Quarter: 2018Q4

REPORT INFORMATION
  Report Type: Spontaneous
  Country: IT (occurrence: IT)
  Receive Date: 20180403
  Receipt Date: 20181116
  Transmission Date: 20190204
  Serious: Yes (Life-Threatening, Hospitalization, Congenital Anomaly, Other)
  Sender: FDA-Public Use
  Company Number: IT-MYLANLABS-2018M1019562

PATIENT
  Age: 30 Week
  Sex: Female
  Weight: 1.97 kg

DRUGS (6)
  1. DICLOFENAC [Suspect]
     Active Substance: DICLOFENAC
     Indication: NEURITIS
     Dosage: 75 MG, QD
     Route: 064
  2. NIMESULIDE [Suspect]
     Active Substance: NIMESULIDE
     Indication: SCIATICA
     Dosage: 100 MG, QD
     Route: 064
  3. DICLOFENAC [Suspect]
     Active Substance: DICLOFENAC
     Indication: SCIATICA
  4. NIMESULIDE [Suspect]
     Active Substance: NIMESULIDE
     Indication: NEURITIS
     Dosage: 1 DF, QD,MATERNAL DOSE: 1 DF, QD (1 UG/LITRE)
     Route: 064
  5. PARACETAMOL [Suspect]
     Active Substance: ACETAMINOPHEN
     Indication: NEURITIS
     Dosage: 1 DF, QD,MATERNAL DOSE: 1 DF, QD (1 UG/LITRE)
     Route: 064
  6. PARACETAMOL [Suspect]
     Active Substance: ACETAMINOPHEN
     Indication: SCIATICA
     Dosage: 1 DF, QD
     Route: 064

REACTIONS (14)
  - Ductus arteriosus stenosis foetal [Recovered/Resolved]
  - Premature baby [Unknown]
  - Renal failure neonatal [Recovered/Resolved]
  - Neonatal respiratory acidosis [Recovered/Resolved]
  - Blood creatinine increased [Recovered/Resolved]
  - Bradycardia neonatal [Recovered/Resolved]
  - Cyanosis neonatal [Recovered/Resolved]
  - Neonatal respiratory distress syndrome [Recovered/Resolved]
  - Low birth weight baby [Unknown]
  - Prescribed overdose [Unknown]
  - Oligohydramnios [Unknown]
  - Emphysema [Unknown]
  - Polyuria [Unknown]
  - Foetal exposure during pregnancy [Recovered/Resolved]
